FAERS Safety Report 8928405 (Version 2)
Quarter: 2012Q4

REPORT INFORMATION
  Report Type: Report from Study
  Country: FR (occurrence: FR)
  Receive Date: 20121128
  Receipt Date: 20121130
  Transmission Date: 20130627
  Serious: Yes (Death, Hospitalization, Other)
  Sender: FDA-Public Use
  Company Number: PHHY2012FR107008

PATIENT
  Age: 78 Year
  Sex: Male
  Weight: 84 kg

DRUGS (5)
  1. RASILEZ [Suspect]
     Indication: DIABETIC NEPHROPATHY
     Dosage: 150 mg, QD
     Dates: start: 20111104, end: 20120110
  2. BISOPROLOL [Concomitant]
     Dosage: 2.5 mg, daily
  3. FUROSEMIDE [Concomitant]
     Dosage: 125 mg, daily
  4. LANTUS [Concomitant]
     Dosage: 50 U, daily
  5. ERYTHROPOIETIN [Concomitant]

REACTIONS (4)
  - Nervous system disorder [Fatal]
  - Hepatic cirrhosis [Fatal]
  - Generalised oedema [Fatal]
  - Blood creatine increased [Unknown]
